FAERS Safety Report 6719270-X (Version None)
Quarter: 2010Q2

REPORT INFORMATION
  Report Type: 
  Country: None (occurrence: None)
  Receive Date: 20100507
  Receipt Date: 20100423
  Transmission Date: 20101027
  Serious: Yes (Hospitalization)
  Sender: FDA-Public Use
  Company Number: 2010AM001882

PATIENT
  Age: 69 Year
  Sex: Male
  Weight: 72.1219 kg

DRUGS (6)
  1. SYMLIN [Suspect]
     Indication: TYPE 2 DIABETES MELLITUS
     Dosage: 120 MCG;BID;SC, 60 MCG;BID;SC
     Route: 058
     Dates: start: 20091101, end: 20100201
  2. SYMLIN [Suspect]
     Indication: TYPE 2 DIABETES MELLITUS
     Dosage: 120 MCG;BID;SC, 60 MCG;BID;SC
     Route: 058
     Dates: start: 20100201
  3. PREVACID [Concomitant]
  4. FLOMAX [Concomitant]
  5. GLYBURIDE [Concomitant]
  6. ACTOS [Concomitant]

REACTIONS (2)
  - PANCREATICODUODENECTOMY [None]
  - WEIGHT DECREASED [None]
